FAERS Safety Report 8508887-8 (Version None)
Quarter: 2012Q3

REPORT INFORMATION
  Report Type: 
  Country: None (occurrence: None)
  Receive Date: 20120713
  Receipt Date: 20120709
  Transmission Date: 20120928
  Serious: Yes (Death, Other)
  Sender: FDA-Public Use
  Company Number: US-GENZYME-CAMP-1002325

PATIENT
  Age: 33 Year
  Sex: Female

DRUGS (5)
  1. CAMPATH [Suspect]
     Indication: PROPHYLAXIS AGAINST GRAFT VERSUS HOST DISEASE
     Dosage: UNK
  2. THYMOGLOBULIN [Suspect]
     Indication: BONE MARROW CONDITIONING REGIMEN
     Dosage: UNK
     Route: 065
  3. CYCLOPHOSPHAMIDE [Concomitant]
     Indication: BONE MARROW CONDITIONING REGIMEN
     Dosage: UNK
     Route: 065
  4. CYCLOSPORINE [Concomitant]
     Indication: PROPHYLAXIS AGAINST GRAFT VERSUS HOST DISEASE
     Dosage: UNK
     Route: 065
  5. FLUDARABINE PHOSPHATE [Concomitant]
     Indication: BONE MARROW CONDITIONING REGIMEN
     Dosage: UNK
     Route: 065

REACTIONS (8)
  - HYDROCEPHALUS [None]
  - ENTEROCOCCAL BACTERAEMIA [None]
  - RETINAL HAEMORRHAGE [None]
  - RETINAL DISORDER [None]
  - GRAFT VERSUS HOST DISEASE [None]
  - MENINGITIS [None]
  - MICROSPORIDIA INFECTION [None]
  - PULMONARY ALVEOLAR HAEMORRHAGE [None]
